FAERS Safety Report 13440114 (Version 1)
Quarter: 2017Q2

REPORT INFORMATION
  Report Type: Spontaneous
  Country: US (occurrence: US)
  Receive Date: 20170413
  Receipt Date: 20170413
  Transmission Date: 20170830
  Serious: No
  Sender: FDA-Public Use
  Company Number: US-ASTELLAS-2016US016661

PATIENT
  Sex: Female

DRUGS (1)
  1. PROGRAF [Suspect]
     Active Substance: TACROLIMUS\TACROLIMUS ANHYDROUS
     Indication: RENAL TRANSPLANT
     Dosage: 4 MG EVERY MONRING AND 3 MG EVERY EVENING
     Route: 048
     Dates: start: 20130925, end: 20160304

REACTIONS (4)
  - Visual impairment [Unknown]
  - Alopecia [Unknown]
  - Paraesthesia [Unknown]
  - Blood glucose increased [Unknown]
